FAERS Safety Report 13155795 (Version 16)
Quarter: 2018Q2

REPORT INFORMATION
  Report Type: Report from Study
  Country: CA (occurrence: CA)
  Receive Date: 20170126
  Receipt Date: 20180626
  Transmission Date: 20180711
  Serious: Yes (Hospitalization, Other)
  Sender: FDA-Public Use
  Company Number: CA-TAKEDA-2017TUS001473

PATIENT
  Age: 33 Year
  Sex: Female

DRUGS (5)
  1. MARIJUANA [Concomitant]
     Active Substance: CANNABIS SATIVA SUBSP. INDICA TOP
     Dosage: UNK,  UNK,QD
  2. ACETAMINOPHEN. [Concomitant]
     Active Substance: ACETAMINOPHEN
     Indication: PREMEDICATION
     Dosage: 650 MG, UNK
     Route: 048
  3. VEDOLIZUMAB [Suspect]
     Active Substance: VEDOLIZUMAB
     Indication: CROHN^S DISEASE
     Dosage: 300 MG, UNK
     Route: 042
     Dates: start: 20160601
  4. HYDROMORPHONE [Concomitant]
     Active Substance: HYDROMORPHONE
     Dosage: 3 MG, UNK
  5. VEDOLIZUMAB [Suspect]
     Active Substance: VEDOLIZUMAB
     Dosage: 300 MG, Q4WEEKS
     Route: 042
     Dates: start: 20170913

REACTIONS (17)
  - Umbilical hernia [Recovered/Resolved with Sequelae]
  - Abdominal pain [Unknown]
  - Decreased appetite [Unknown]
  - Frequent bowel movements [Not Recovered/Not Resolved]
  - Weight decreased [Unknown]
  - Abdominal distension [Unknown]
  - Therapeutic reaction time decreased [Unknown]
  - Diarrhoea haemorrhagic [Unknown]
  - Umbilical discharge [Unknown]
  - Poor venous access [Unknown]
  - Flatulence [Unknown]
  - Off label use [Unknown]
  - Post procedural complication [Not Recovered/Not Resolved]
  - Blood pressure increased [Unknown]
  - Postoperative abscess [Recovered/Resolved]
  - Post procedural infection [Unknown]
  - Enteritis [Not Recovered/Not Resolved]

NARRATIVE: CASE EVENT DATE: 20161125
